FAERS Safety Report 7475810-7 (Version None)
Quarter: 2011Q2

REPORT INFORMATION
  Report Type: 
  Country: None (occurrence: None)
  Receive Date: 20110504
  Receipt Date: 20110419
  Transmission Date: 20111010
  Serious: Yes (Other)
  Sender: FDA-Public Use
  Company Number: 031424

PATIENT
  Age: 41 Year
  Sex: Male

DRUGS (3)
  1. EPANUTIN /00017402/ [Concomitant]
  2. KEPPRA [Suspect]
     Indication: EPILEPSY
     Dosage: 250 MG QD ORAL, 500 MG BID ORAL
     Route: 048
     Dates: start: 20100201, end: 20100811
  3. KEPPRA [Suspect]
     Indication: EPILEPSY
     Dosage: 250 MG QD ORAL, 500 MG BID ORAL
     Route: 048
     Dates: start: 20090616

REACTIONS (8)
  - AGITATION [None]
  - MOOD SWINGS [None]
  - PARANOIA [None]
  - ANXIETY [None]
  - AGGRESSION [None]
  - FEELING GUILTY [None]
  - PERSONALITY CHANGE [None]
  - DELUSION [None]
